FAERS Safety Report 5060630-3 (Version None)
Quarter: 2006Q2

REPORT INFORMATION
  Report Type: 
  Country: None (occurrence: None)
  Receive Date: 20060630
  Receipt Date: 20051214
  Transmission Date: 20061013
  Serious: Yes (Other)
  Sender: FDA-Public Use
  Company Number: US200512002985

PATIENT
  Sex: Male

DRUGS (2)
  1. HUMALOG [Suspect]
  2. BYETTA [Concomitant]

REACTIONS (1)
  - HYPOGLYCAEMIA [None]
